FAERS Safety Report 21047670 (Version 1)
Quarter: 2022Q3

REPORT INFORMATION
  Report Type: Spontaneous
  Country: CN (occurrence: CN)
  Receive Date: 20220706
  Receipt Date: 20220706
  Transmission Date: 20221027
  Serious: Yes (Hospitalization, Other)
  Sender: FDA-Public Use
  Company Number: None

PATIENT
  Age: 42 Year
  Sex: Female
  Weight: 46.5 kg

DRUGS (8)
  1. CYCLOPHOSPHAMIDE [Suspect]
     Active Substance: CYCLOPHOSPHAMIDE
     Indication: Diffuse large B-cell lymphoma stage IV
     Dosage: INJECTION, CYCLOPHOSPHAMIDE (1.1G) + 0.9% SODIUM CHLORIDE (500 ML)
     Route: 041
     Dates: start: 20220611, end: 20220611
  2. SODIUM CHLORIDE [Suspect]
     Active Substance: SODIUM CHLORIDE
     Indication: Medication dilution
     Dosage: CYCLOPHOSPHAMIDE (1.1G) + 0.9% SODIUM CHLORIDE (500 ML)
     Route: 041
     Dates: start: 20220611, end: 20220611
  3. SODIUM CHLORIDE [Suspect]
     Active Substance: SODIUM CHLORIDE
     Dosage: RITUXIMAB (500 MG) + 0.9% SODIUM CHLORIDE(500 ML)
     Route: 041
     Dates: start: 20220610, end: 20220610
  4. SODIUM CHLORIDE [Suspect]
     Active Substance: SODIUM CHLORIDE
     Dosage: VINNCRISTINE SULFATE (2 MG) + 0.9% SODIUM CHLORIDE (100 ML)
     Route: 041
     Dates: start: 20220611, end: 20220611
  5. DEXTROSE MONOHYDRATE [Suspect]
     Active Substance: DEXTROSE MONOHYDRATE
     Indication: Medication dilution
     Dosage: PIRARUBICIN HYDROCHLORIDE (75 MG) + 5% GLUCOSE (250 ML)
     Route: 041
     Dates: start: 20220611, end: 20220611
  6. RITUXIMAB [Suspect]
     Active Substance: RITUXIMAB
     Indication: Diffuse large B-cell lymphoma stage IV
     Dosage: RITUXIMAB (500 MG) + 0.9% SODIUM CHLORIDE(500 ML)
     Route: 041
     Dates: start: 20220610, end: 20220610
  7. PIRARUBICIN HYDROCHLORIDE [Suspect]
     Active Substance: PIRARUBICIN HYDROCHLORIDE
     Indication: Diffuse large B-cell lymphoma stage IV
     Dosage: POWDER, PIRARUBICIN HYDROCHLORIDE (75 MG) + 5% GLUCOSE (250 ML)
     Route: 041
     Dates: start: 20220611, end: 20220611
  8. VINCRISTINE SULFATE [Suspect]
     Active Substance: VINCRISTINE SULFATE
     Indication: Diffuse large B-cell lymphoma stage IV
     Dosage: VINNCRISTINE SULFATE (2 MG) + 0.9% SODIUM CHLORIDE (100 ML)
     Route: 041
     Dates: start: 20220611, end: 20220611

REACTIONS (1)
  - Myelosuppression [Recovered/Resolved]

NARRATIVE: CASE EVENT DATE: 20220624
